FAERS Safety Report 8406715-2 (Version None)
Quarter: 2012Q2

REPORT INFORMATION
  Report Type: 
  Country: None (occurrence: None)
  Receive Date: 20120604
  Receipt Date: 20120524
  Transmission Date: 20120825
  Serious: Yes (Other)
  Sender: FDA-Public Use
  Company Number: DE-PFIZER INC-2012107680

PATIENT
  Age: 13 Year

DRUGS (3)
  1. SORAFENIB [Concomitant]
     Indication: HEPATIC NEOPLASM MALIGNANT RESECTABLE
     Dosage: 250 MG/M2/DAY ON DAYS 5-21, CYCLIC
     Route: 042
  2. CISPLATIN [Suspect]
     Indication: HEPATIC NEOPLASM MALIGNANT RESECTABLE
     Dosage: 80 MG/M2/24H ON DAY 1, CYCLIC
     Route: 042
  3. DOXORUBICIN HCL [Suspect]
     Indication: HEPATIC NEOPLASM MALIGNANT RESECTABLE
     Dosage: 60 MG/M2/48H ON DAYS 2 AND 3, CYCLIC
     Route: 042

REACTIONS (2)
  - BONE SARCOMA [None]
  - NEOPLASM MALIGNANT [None]
